FAERS Safety Report 5679960-7 (Version None)
Quarter: 2008Q1

REPORT INFORMATION
  Report Type: 
  Country: None (occurrence: None)
  Receive Date: 20080324
  Receipt Date: 20080311
  Transmission Date: 20080703
  Serious: Yes (Other)
  Sender: FDA-Public Use
  Company Number: GXKR2008NZ02550

PATIENT
  Age: 60 Year
  Sex: Female

DRUGS (5)
  1. SULFASALAZINE [Suspect]
  2. AVALIDE [Suspect]
  3. VIOXX [Concomitant]
  4. LEVOXYL [Concomitant]
  5. ACETYLSALICYLIC ACID SRT [Concomitant]

REACTIONS (3)
  - ANGLE CLOSURE GLAUCOMA [None]
  - EYE PAIN [None]
  - VISION BLURRED [None]
